FAERS Safety Report 6873960-7 (Version None)
Quarter: 2010Q3

REPORT INFORMATION
  Report Type: 
  Country: None (occurrence: None)
  Receive Date: 20100723
  Receipt Date: 20090406
  Transmission Date: 20110219
  Serious: Yes (Other)
  Sender: FDA-Public Use
  Company Number: US-PFIZER INC-2009198006

PATIENT
  Sex: Male
  Weight: 104.31 kg

DRUGS (1)
  1. CHANTIX [Suspect]
     Indication: TOBACCO USER
     Dosage: FREQUENCY: 2X/DAY, EVERY DAY;
     Dates: start: 20090301, end: 20090402

REACTIONS (1)
  - VIITH NERVE PARALYSIS [None]
